FAERS Safety Report 13909560 (Version 1)
Quarter: 2017Q3

REPORT INFORMATION
  Report Type: Spontaneous
  Country: GB (occurrence: GB)
  Receive Date: 20170828
  Receipt Date: 20170828
  Transmission Date: 20171127
  Serious: Yes (Other)
  Sender: FDA-Public Use
  Company Number: GB-AUROBINDO-AUR-APL-2017-39197

PATIENT
  Age: 41 Year
  Sex: Male
  Weight: 95 kg

DRUGS (10)
  1. LAXIDO                             /06401201/ [Concomitant]
     Active Substance: POLYETHYLENE GLYCOL 3350\POTASSIUM CHLORIDE\SODIUM BICARBONATE\SODIUM CHLORIDE
     Indication: PRODUCT USED FOR UNKNOWN INDICATION
     Dosage: 1 DF, EVERY OTHER DAY
     Route: 065
  2. OMEPRAZOLE. [Concomitant]
     Active Substance: OMEPRAZOLE
     Indication: PRODUCT USED FOR UNKNOWN INDICATION
     Dosage: 40 MG, ONCE A DAY
     Route: 065
  3. CETIRIZINE [Concomitant]
     Active Substance: CETIRIZINE HYDROCHLORIDE
     Indication: PRODUCT USED FOR UNKNOWN INDICATION
     Dosage: 10 MG, ONCE A DAY
     Route: 065
  4. LORAZEPAM. [Concomitant]
     Active Substance: LORAZEPAM
     Indication: AGITATION
     Dosage: MAXIMUM X2 IN 24 HOURS
     Route: 065
  5. PAROXETINE. [Concomitant]
     Active Substance: PAROXETINE
     Indication: PRODUCT USED FOR UNKNOWN INDICATION
     Dosage: 20 MG, ONCE A DAY
     Route: 065
  6. DIAZEPAM. [Concomitant]
     Active Substance: DIAZEPAM
     Indication: PRODUCT USED FOR UNKNOWN INDICATION
     Dosage: 3MG AT 8AM, 4MG AT 1PM AND 5MG AT 9PM
     Route: 065
  7. RISPERIDONE. [Concomitant]
     Active Substance: RISPERIDONE
     Indication: PRODUCT USED FOR UNKNOWN INDICATION
     Dosage: 2MG AT 8AM AND 1PM AND 1MG AT 6PM. PRESCRIBED AT THIS DOSE FROM 2005
     Route: 065
     Dates: start: 1999
  8. ARIPIPRAZOLE. [Suspect]
     Active Substance: ARIPIPRAZOLE
     Indication: ANTIPROLACTIN THERAPY
     Dosage: 2.5 MG, ONCE A DAY
     Route: 048
     Dates: start: 20170724, end: 20170728
  9. MELATONIN [Concomitant]
     Active Substance: MELATONIN
     Indication: POOR QUALITY SLEEP
     Dosage: 6 MG, ONCE A DAY
     Route: 065
     Dates: start: 201506
  10. LEVETIRACETAM. [Concomitant]
     Active Substance: LEVETIRACETAM
     Indication: PRODUCT USED FOR UNKNOWN INDICATION
     Dosage: 500 MG, TWO TIMES A DAY
     Route: 065
     Dates: end: 201601

REACTIONS (1)
  - Generalised tonic-clonic seizure [Recovered/Resolved]

NARRATIVE: CASE EVENT DATE: 20170728
